FAERS Safety Report 15762410 (Version 1)
Quarter: 2018Q4

REPORT INFORMATION
  Report Type: Spontaneous
  Country: FR (occurrence: FR)
  Receive Date: 20181226
  Receipt Date: 20181226
  Transmission Date: 20190205
  Serious: Yes (Hospitalization)
  Sender: FDA-Public Use
  Company Number: FR-JNJFOC-20181228769

PATIENT
  Age: 16 Year
  Sex: Male

DRUGS (1)
  1. TRAMADOL HYDROCHLORIDE. [Suspect]
     Active Substance: TRAMADOL HYDROCHLORIDE
     Indication: PRODUCT USED FOR UNKNOWN INDICATION
     Route: 048

REACTIONS (3)
  - Drug dependence [Recovering/Resolving]
  - Suicide attempt [Unknown]
  - Intentional product misuse [Recovering/Resolving]

NARRATIVE: CASE EVENT DATE: 2016
